FAERS Safety Report 14392444 (Version 5)
Quarter: 2019Q4

REPORT INFORMATION
  Report Type: Report from Study
  Country: PL (occurrence: PL)
  Receive Date: 20180116
  Receipt Date: 20191029
  Transmission Date: 20200122
  Serious: Yes (Hospitalization)
  Sender: FDA-Public Use
  Company Number: PL-ROCHE-2050145

PATIENT
  Age: 70 Year
  Sex: Male

DRUGS (25)
  1. ENZALUTAMIDE [Suspect]
     Active Substance: ENZALUTAMIDE
     Indication: HORMONE-REFRACTORY PROSTATE CANCER
     Dosage: DOSE OF LAST SUSPECTED ENZALUTAMIDE PRIOR TO THE SAE: 11/DEC/2017
     Route: 048
     Dates: start: 20171031
  2. NO-SPA [Concomitant]
     Active Substance: DROTAVERINE HYDROCHLORIDE
     Route: 042
     Dates: start: 20180104, end: 20180104
  3. PABI-DEXAMETHASON [Concomitant]
     Route: 048
     Dates: start: 20180112
  4. SEVREDOL [Concomitant]
     Active Substance: MORPHINE
     Route: 048
     Dates: start: 20180112
  5. FRAGMIN [Concomitant]
     Active Substance: DALTEPARIN SODIUM
     Route: 042
     Dates: start: 20180103, end: 20180104
  6. DIPHERELINE [Concomitant]
     Active Substance: TRIPTORELIN ACETATE
     Route: 030
     Dates: start: 20141202
  7. METHADONUM [Concomitant]
     Route: 058
     Dates: start: 20180102, end: 20180104
  8. BISOCARD [Concomitant]
     Active Substance: BISOPROLOL
     Route: 048
     Dates: start: 20180103, end: 20180104
  9. CIPRONEX [CIPROFLOXACIN] [Concomitant]
     Route: 048
     Dates: start: 20180102, end: 20180104
  10. CORONAL [BISOPROLOL FUMARATE] [Concomitant]
     Route: 048
  11. ENCORTON [PREDNISONE] [Concomitant]
     Active Substance: PREDNISONE
     Route: 048
     Dates: start: 20180103, end: 20180104
  12. PABI-DEXAMETHASON [Concomitant]
     Route: 048
     Dates: start: 20180102, end: 20180103
  13. CITALOPRAM [Concomitant]
     Active Substance: CITALOPRAM HYDROBROMIDE
     Route: 048
     Dates: start: 20180112
  14. ATEZOLIZUMAB. [Suspect]
     Active Substance: ATEZOLIZUMAB
     Indication: HORMONE-REFRACTORY PROSTATE CANCER
     Dosage: DATE OF MOST RECENT DOSE OF ATEZOLIZUMAB PRIOR TO THE SAE: 11/DEC/2017
     Route: 042
     Dates: start: 20171031
  15. NEOPARIN [Concomitant]
     Route: 058
  16. FUROSEMIDUM [FUROSEMIDE] [Concomitant]
     Active Substance: FUROSEMIDE
     Route: 042
     Dates: start: 20180102, end: 20180104
  17. OMEPRAZOLUM [Concomitant]
     Route: 048
  18. TRANSTEC [Concomitant]
     Active Substance: BUPRENORPHINE
     Route: 065
     Dates: start: 20171016
  19. MILURIT [Concomitant]
     Active Substance: ALLOPURINOL
     Route: 048
     Dates: start: 20180102, end: 20180104
  20. DUROGESIC [Concomitant]
     Active Substance: FENTANYL
     Route: 065
     Dates: start: 20180104, end: 20180104
  21. TRITACE [Concomitant]
     Active Substance: RAMIPRIL
     Route: 048
     Dates: start: 20180104, end: 20180104
  22. PARACETAMOL [Concomitant]
     Active Substance: ACETAMINOPHEN
     Route: 042
     Dates: start: 20180102, end: 20180104
  23. NYSTATYNA [Concomitant]
     Route: 048
     Dates: start: 20180112
  24. AXUDAN [Concomitant]
     Active Substance: VALSARTAN
     Route: 048
  25. MILURIT [Concomitant]
     Active Substance: ALLOPURINOL
     Route: 048

REACTIONS (1)
  - Autoimmune myocarditis [Recovered/Resolved]

NARRATIVE: CASE EVENT DATE: 20180104
